FAERS Safety Report 13366754 (Version 1)
Quarter: 2017Q1

REPORT INFORMATION
  Report Type: Other
  Country: NO (occurrence: NO)
  Receive Date: 20170324
  Receipt Date: 20170324
  Transmission Date: 20170429
  Serious: Yes (Other)
  Sender: FDA-Public Use
  Company Number: NO-HIKMA PHARMACEUTICALS CO. LTD-2017NO003313

PATIENT

DRUGS (2)
  1. INFLECTRA [Suspect]
     Active Substance: INFLIXIMAB-DYYB
     Indication: CROHN^S DISEASE
     Dosage: 350 MG, UNK
     Route: 041
     Dates: start: 20160607, end: 20160919
  2. PREDNISOLON                        /00016201/ [Concomitant]
     Active Substance: PREDNISOLONE
     Dosage: UNK
     Dates: start: 201607

REACTIONS (5)
  - Encephalopathy [Unknown]
  - Gastrointestinal oedema [Unknown]
  - Pancreatitis [Unknown]
  - Drug-induced liver injury [Recovering/Resolving]
  - Pustular psoriasis [Unknown]

NARRATIVE: CASE EVENT DATE: 201606
